FAERS Safety Report 5588415-X (Version None)
Quarter: 2008Q1

REPORT INFORMATION
  Report Type: 
  Country: None (occurrence: None)
  Receive Date: 20080111
  Receipt Date: 20071130
  Transmission Date: 20080703
  Serious: No
  Sender: FDA-Public Use
  Company Number: A0696809A

PATIENT
  Age: 44 Year
  Sex: Female

DRUGS (2)
  1. TYKERB [Suspect]
     Dosage: 5TAB PER DAY
     Route: 048
     Dates: start: 20071128
  2. MULTIPLE MEDICATIONS [Concomitant]

REACTIONS (3)
  - DYSPHAGIA [None]
  - PAIN [None]
  - SENSATION OF FOREIGN BODY [None]
